FAERS Safety Report 24158286 (Version 1)
Quarter: 2024Q3

REPORT INFORMATION
  Report Type: Spontaneous
  Country: US (occurrence: None)
  Receive Date: 20240731
  Receipt Date: 20240731
  Transmission Date: 20241016
  Serious: Yes (Life-Threatening, Hospitalization)
  Sender: Public
  Company Number: None

PATIENT
  Age: 70 Year
  Sex: Male
  Weight: 78.75 kg

DRUGS (10)
  1. XELJANZ XR [Suspect]
     Active Substance: TOFACITINIB CITRATE
     Indication: Rheumatoid arthritis
  2. VALSARTAN [Concomitant]
  3. Nifedeprine [Concomitant]
  4. propranarol [Concomitant]
  5. ATORVASTATIN [Concomitant]
  6. vitamin D [Concomitant]
  7. L-TYROSINE [Concomitant]
  8. Juice Plus Veg and Fruit [Concomitant]
  9. multivitamin [Concomitant]
  10. BAYER ASPIRIN [Concomitant]

REACTIONS (1)
  - Ventricular fibrillation [None]

NARRATIVE: CASE EVENT DATE: 20240517
